FAERS Safety Report 8429209-7 (Version None)
Quarter: 2012Q2

REPORT INFORMATION
  Report Type: 
  Country: None (occurrence: None)
  Receive Date: 20120601
  Receipt Date: 20120523
  Transmission Date: 20120825
  Serious: Yes (Other)
  Sender: FDA-Public Use
  Company Number: 2012SP025035

PATIENT
  Age: 60 Year
  Sex: Male
  Weight: 57 kg

DRUGS (7)
  1. REBETOL [Suspect]
     Indication: HEPATITIS C
     Dosage: 400 MG;QD;PO
     Route: 048
     Dates: start: 20120413, end: 20120423
  2. TELAVIC (ANTIVIRALS NOS) [Suspect]
     Indication: HEPATITIS C
     Dosage: 1500 MG;QD;PO
     Route: 048
     Dates: start: 20120413, end: 20120423
  3. CANDESARTAN CILEXETIL [Concomitant]
  4. GLYCYRON [Concomitant]
  5. RABEPRAZOLE SODIUM [Concomitant]
  6. PEG-INTRON [Suspect]
     Indication: HEPATITIS C
     Dosage: 1.5 MCG/KG;QW;SC
     Route: 058
     Dates: start: 20120413, end: 20120423
  7. URSO 250 [Concomitant]

REACTIONS (12)
  - INJECTION SITE PRURITUS [None]
  - RASH PAPULAR [None]
  - INJECTION SITE ERYTHEMA [None]
  - INJECTION SITE VESICLES [None]
  - LARGE INTESTINE PERFORATION [None]
  - INFECTIOUS PERITONITIS [None]
  - LYMPHADENOPATHY [None]
  - PYREXIA [None]
  - SKIN DISORDER [None]
  - SKIN LESION [None]
  - DIVERTICULAR PERFORATION [None]
  - BLISTER [None]
